FAERS Safety Report 13301858 (Version 1)
Quarter: 2017Q1

REPORT INFORMATION
  Report Type: Spontaneous
  Country: CN (occurrence: CN)
  Receive Date: 20170307
  Receipt Date: 20170307
  Transmission Date: 20170428
  Serious: Yes (Other)
  Sender: FDA-Public Use
  Company Number: CN-ELI_LILLY_AND_COMPANY-CN201703002072

PATIENT
  Age: 53 Year
  Sex: Female

DRUGS (16)
  1. ERBITUX [Suspect]
     Active Substance: CETUXIMAB
     Dosage: 250 MG/M2, WEEKLY (1/W)
     Route: 042
  2. ERBITUX [Suspect]
     Active Substance: CETUXIMAB
     Dosage: 250 MG/M2, WEEKLY (1/W)
     Route: 042
  3. IRINOTECAN [Suspect]
     Active Substance: IRINOTECAN
     Indication: COLORECTAL CANCER METASTATIC
     Dosage: 180 MG/M2, CYCLICAL
     Route: 065
     Dates: start: 201211
  4. 5-FU                               /00098801/ [Suspect]
     Active Substance: FLUOROURACIL
     Dosage: 600 MG/M2, UNK
     Route: 042
     Dates: start: 201211
  5. XELODA [Suspect]
     Active Substance: CAPECITABINE
     Dosage: 750 MG/M2, BID
     Route: 048
  6. LEUCOVORIN                         /00566701/ [Suspect]
     Active Substance: LEUCOVORIN
     Dosage: 200 MG/M2, CYCLICAL
     Route: 065
     Dates: start: 201211
  7. OXALIPLATIN. [Suspect]
     Active Substance: OXALIPLATIN
     Dosage: 85 MG/M2, CYCLICAL
     Dates: start: 20080301
  8. ERBITUX [Suspect]
     Active Substance: CETUXIMAB
     Dosage: 400 MG/M2, WEEKLY (1/W)
     Route: 042
     Dates: start: 201211
  9. XELODA [Suspect]
     Active Substance: CAPECITABINE
     Indication: COLORECTAL CANCER METASTATIC
     Dosage: 1000 MG/M2, BID
     Route: 048
  10. 5-FU                               /00098801/ [Suspect]
     Active Substance: FLUOROURACIL
     Dosage: 600 MG/M2, UNK
     Route: 042
     Dates: start: 20080301
  11. LEUCOVORIN                         /00566701/ [Suspect]
     Active Substance: LEUCOVORIN
     Indication: COLORECTAL CANCER METASTATIC
     Dosage: 200 MG/M2, CYCLICAL
     Route: 065
     Dates: start: 20080301
  12. OXALIPLATIN. [Suspect]
     Active Substance: OXALIPLATIN
     Indication: COLORECTAL CANCER METASTATIC
     Dosage: 130 MG/M2, CYCLICAL
     Route: 065
  13. 5-FU                               /00098801/ [Suspect]
     Active Substance: FLUOROURACIL
     Dosage: 400 MG/M2, UNK
     Route: 040
     Dates: start: 201211
  14. ERBITUX [Suspect]
     Active Substance: CETUXIMAB
     Indication: COLORECTAL CANCER METASTATIC
     Dosage: 400 MG/M2, WEEKLY (1/W)
     Route: 042
     Dates: start: 20080301
  15. XELODA [Suspect]
     Active Substance: CAPECITABINE
     Dosage: 1000 MG/M2, BID
     Route: 048
  16. 5-FU                               /00098801/ [Suspect]
     Active Substance: FLUOROURACIL
     Indication: COLORECTAL CANCER METASTATIC
     Dosage: 400 MG/M2, UNK
     Route: 040
     Dates: start: 20080301

REACTIONS (10)
  - Fatigue [Unknown]
  - Trichomegaly [Unknown]
  - Rash [Unknown]
  - Disease progression [Unknown]
  - Gastrointestinal surgery [Unknown]
  - Peripheral sensory neuropathy [Unknown]
  - Bone marrow failure [Unknown]
  - Chest discomfort [Unknown]
  - Salpingo-oophorectomy unilateral [Unknown]
  - Off label use [Unknown]

NARRATIVE: CASE EVENT DATE: 201404
